FAERS Safety Report 6746020-3 (Version None)
Quarter: 2010Q2

REPORT INFORMATION
  Report Type: 
  Country: None (occurrence: None)
  Receive Date: 20100528
  Receipt Date: 20100521
  Transmission Date: 20101027
  Serious: Yes (Other)
  Sender: FDA-Public Use
  Company Number: BR-PFIZER INC-2010064209

PATIENT
  Age: 48 Year
  Sex: Female

DRUGS (1)
  1. DOSTINEX [Suspect]
     Dosage: UNK
     Route: 048

REACTIONS (1)
  - AMNESIA [None]
